FAERS Safety Report 24215571 (Version 1)
Quarter: 2024Q3

REPORT INFORMATION
  Report Type: Spontaneous
  Country: CN (occurrence: CN)
  Receive Date: 20240816
  Receipt Date: 20240816
  Transmission Date: 20241017
  Serious: Yes (Other)
  Sender: JOHNSON AND JOHNSON
  Company Number: CN-JNJFOC-20240827775

PATIENT
  Age: 38 Year
  Sex: Female
  Weight: 55 kg

DRUGS (5)
  1. TYLENOL [Suspect]
     Active Substance: ACETAMINOPHEN
     Indication: Pyrexia
     Route: 065
     Dates: start: 20240704, end: 20240705
  2. VANCOMYCIN [Suspect]
     Active Substance: VANCOMYCIN
     Indication: Infection
     Route: 041
     Dates: start: 20240620, end: 20240705
  3. MEROPENEM [Suspect]
     Active Substance: MEROPENEM
     Indication: Infection
     Route: 041
     Dates: start: 20240621, end: 20240708
  4. OLANZAPINE [Suspect]
     Active Substance: OLANZAPINE
     Indication: Brain herniation
     Route: 048
     Dates: start: 20240625, end: 20240711
  5. FLUCONAZOLE [Suspect]
     Active Substance: FLUCONAZOLE
     Indication: Infection
     Route: 041
     Dates: start: 20240703, end: 20240705

REACTIONS (1)
  - Hepatic function abnormal [Recovering/Resolving]

NARRATIVE: CASE EVENT DATE: 20240706
